FAERS Safety Report 10156104 (Version 4)
Quarter: 2014Q2

REPORT INFORMATION
  Report Type: Spontaneous
  Country: FR (occurrence: FR)
  Receive Date: 20140506
  Receipt Date: 20140620
  Transmission Date: 20141212
  Serious: Yes (Death, Other)
  Sender: FDA-Public Use
  Company Number: FR-EXELIXIS-CABO-14004239

PATIENT
  Age: 51 Year
  Sex: Male

DRUGS (4)
  1. COMETRIQ [Suspect]
     Indication: LUNG NEOPLASM MALIGNANT
     Dosage: 60 MG, QD
     Route: 048
     Dates: start: 20140425
  2. MORPHINE [Concomitant]
  3. HDCS [Concomitant]
  4. DROLEPTAN [Concomitant]

REACTIONS (4)
  - Death [Fatal]
  - Depressed level of consciousness [Recovered/Resolved]
  - Hyponatraemia [Recovered/Resolved]
  - Off label use [Unknown]
